FAERS Safety Report 5288354-8 (Version None)
Quarter: 2007Q2

REPORT INFORMATION
  Report Type: 
  Country: None (occurrence: None)
  Receive Date: 20070405
  Receipt Date: 20070330
  Transmission Date: 20071010
  Serious: Yes (Other)
  Sender: FDA-Public Use
  Company Number: JP-ROCHE-490637

PATIENT
  Age: 53 Year
  Sex: Female

DRUGS (3)
  1. TAMIFLU [Suspect]
     Route: 048
     Dates: start: 20070325, end: 20070326
  2. THYRADIN S [Suspect]
     Indication: DRUG USE FOR UNKNOWN INDICATION
     Route: 048
  3. FLUMARIN [Suspect]
     Indication: DRUG USE FOR UNKNOWN INDICATION
     Route: 065
     Dates: start: 20070325

REACTIONS (2)
  - CYANOSIS [None]
  - TREMOR [None]
